FAERS Safety Report 7819759-6 (Version None)
Quarter: 2011Q4

REPORT INFORMATION
  Report Type: 
  Country: None (occurrence: None)
  Receive Date: 20111018
  Receipt Date: 20101103
  Transmission Date: 20120403
  Serious: No
  Sender: FDA-Public Use
  Company Number: US-ASTRAZENECA-2010SE52699

PATIENT
  Sex: Female

DRUGS (4)
  1. SYNTHROID [Concomitant]
  2. PROAIR HFA [Concomitant]
  3. SYMBICORT [Suspect]
     Route: 055
  4. PRILOSEC [Suspect]
     Route: 048

REACTIONS (1)
  - DYSPNOEA [None]
